FAERS Safety Report 10058612 (Version 1)
Quarter: 2014Q2

REPORT INFORMATION
  Report Type: Spontaneous
  Country: US (occurrence: US)
  Receive Date: 20140404
  Receipt Date: 20140404
  Transmission Date: 20141212
  Serious: Yes (Other)
  Sender: FDA-Public Use
  Company Number: US-RB-064525-14

PATIENT
  Age: 80 Year
  Sex: Male

DRUGS (1)
  1. SCALPICIN ANTI ITCH MEDICATION [Suspect]
     Indication: PRODUCT USED FOR UNKNOWN INDICATION
     Dosage: PATIENT HAD BEEN USING FOR 2 MONTHS.

REACTIONS (1)
  - Blood pressure increased [Not Recovered/Not Resolved]
